FAERS Safety Report 24211026 (Version 1)
Quarter: 2024Q3

REPORT INFORMATION
  Report Type: Spontaneous
  Country: US (occurrence: None)
  Receive Date: 20240813
  Receipt Date: 20240813
  Transmission Date: 20241017
  Serious: No
  Sender: Public
  Company Number: None

PATIENT
  Age: 64 Year
  Sex: Female
  Weight: 90 kg

DRUGS (12)
  1. TERIPARATIDE [Suspect]
     Active Substance: TERIPARATIDE
     Indication: Senile osteoporosis
     Dosage: FREQUENCY : DAILY;?
     Route: 058
     Dates: start: 20240606
  2. LAMICTAL [Concomitant]
     Active Substance: LAMOTRIGINE
  3. VITAMIN C [Concomitant]
     Active Substance: ASCORBIC ACID
  4. CLARITIN [Concomitant]
     Active Substance: LORATADINE
  5. PROTONIX [Concomitant]
     Active Substance: PANTOPRAZOLE SODIUM
  6. SENOKOT [Concomitant]
     Active Substance: SENNOSIDES
  7. VITAMIN B COMPLEX [Concomitant]
     Active Substance: CYANOCOBALAMIN\DEXPANTHENOL\NIACINAMIDE\PYRIDOXINE HYDROCHLORIDE\RIBOFLAVIN 5^-PHOSPHATE SODIUM\THIA
  8. CALCIUM [Concomitant]
     Active Substance: CALCIUM
  9. VITAMIN D3 [Concomitant]
     Active Substance: CHOLECALCIFEROL
  10. DULOXETINE [Concomitant]
     Active Substance: DULOXETINE
  11. CENTRUM MINIS WOMEN 50+ [Concomitant]
  12. IBUPROFEN [Concomitant]
     Active Substance: IBUPROFEN

REACTIONS (4)
  - Hyperhidrosis [None]
  - Sleep disorder [None]
  - Mental impairment [None]
  - Aphasia [None]

NARRATIVE: CASE EVENT DATE: 20240627
